FAERS Safety Report 9351295 (Version 2)
Quarter: 2013Q4

REPORT INFORMATION
  Report Type: Spontaneous
  Country: IT (occurrence: IT)
  Receive Date: 20130617
  Receipt Date: 20131023
  Transmission Date: 20140711
  Serious: Yes (Other)
  Sender: FDA-Public Use
  Company Number: PHHY2013IT060515

PATIENT
  Age: 51 Year
  Sex: Female

DRUGS (4)
  1. EPIRUBICIN [Suspect]
     Indication: BREAST CANCER
     Dosage: 129 MG, UNK
     Route: 042
     Dates: start: 20130318
  2. FLUOROURACIL [Suspect]
     Indication: BREAST CANCER
     Dosage: 1032 MG, UNK
     Route: 042
     Dates: start: 20130318
  3. CYCLOPHOSPHAMIDE [Suspect]
     Indication: BREAST CANCER
     Dosage: 1032 MG, UNK
     Route: 042
     Dates: start: 20130318
  4. BRUFEN [Concomitant]

REACTIONS (3)
  - Oropharyngeal pain [Recovered/Resolved]
  - Neutropenia [Recovered/Resolved]
  - Pyrexia [Recovered/Resolved]
